FAERS Safety Report 8077385-0 (Version None)
Quarter: 2012Q1

REPORT INFORMATION
  Report Type: 
  Country: None (occurrence: None)
  Receive Date: 20120127
  Receipt Date: 20120125
  Transmission Date: 20120608
  Serious: Yes (Other)
  Sender: FDA-Public Use
  Company Number: PHHY2011IT110528

PATIENT
  Sex: Male

DRUGS (6)
  1. ZOMETA [Suspect]
     Indication: MULTIPLE MYELOMA
     Dates: start: 20110101, end: 20110531
  2. INSULIN [Concomitant]
  3. OMEPRAZOLE [Concomitant]
  4. LASIX [Concomitant]
  5. ALKERAN [Concomitant]
  6. PREDNISONE TAB [Concomitant]

REACTIONS (2)
  - OSTEONECROSIS OF JAW [None]
  - EXPOSED BONE IN JAW [None]
